FAERS Safety Report 6994380 (Version 9)
Quarter: 2012Q4

REPORT INFORMATION
  Report Type: 
  Country: US (occurrence: US)
  Receive Date: 20090514
  Receipt Date: 20120911
  Transmission Date: 20130627
  Serious: Yes (Death, Hospitalization, Other)
  Sender: FDA-Public Use
  Company Number: PHEH2009US04496

PATIENT
  Age: 42 None
  Sex: Female

DRUGS (44)
  1. ZOMETA [Suspect]
     Indication: BONE LOSS
     Dates: start: 200406, end: 20060907
  2. ZOMETA [Suspect]
     Indication: OSTEOPOROSIS
  3. TAMOXIFEN [Concomitant]
     Dates: start: 200406
  4. FEMARA [Concomitant]
     Dates: start: 20050414
  5. FULVESTRANT [Concomitant]
     Dates: start: 20050804, end: 200705
  6. EXEMESTANE [Concomitant]
     Dates: start: 200707, end: 20090818
  7. LETROZOLE [Concomitant]
     Dates: start: 20060410, end: 20101201
  8. LEXAPRO [Concomitant]
  9. HYZAAR [Concomitant]
  10. METFORMIN [Concomitant]
  11. CITALOPRAM [Concomitant]
  12. CYMBALTA [Concomitant]
  13. CIPROFLOXACIN [Concomitant]
  14. AROMASIN [Concomitant]
  15. DULCOLAX [Concomitant]
  16. KEFLEX [Concomitant]
  17. COZAAR [Concomitant]
  18. BEVACIZUMAB [Concomitant]
  19. PACLITAXEL [Concomitant]
     Dates: start: 20090623, end: 20100405
  20. DOXORUBICIN [Concomitant]
     Dates: start: 20110215
  21. ATIVAN [Concomitant]
  22. AMOXICILLIN [Concomitant]
  23. DILAUDID [Concomitant]
     Dosage: 2 mg, every 6 hours
  24. PROMETHAZINE HYDROCHLORIDE [Concomitant]
  25. EMLA [Concomitant]
  26. MORPHINE SULFATE [Concomitant]
  27. AMOXICILINA + CLAVULANICO [Concomitant]
     Dosage: 500 mg, BID
     Route: 048
  28. CLINDAMYCIN [Concomitant]
     Route: 017
     Dates: start: 20060929
  29. HEPARIN [Concomitant]
     Dosage: 5000 U, every 8 hours
     Route: 058
  30. INSULIN ASPART [Concomitant]
     Route: 058
  31. DECADRON [Concomitant]
     Route: 042
  32. DIPHENHYDRAMINE [Concomitant]
     Dosage: 25 mg, every 4 hours
     Route: 048
     Dates: start: 20041014, end: 20050818
  33. NALOXONE [Concomitant]
     Route: 042
     Dates: start: 20041014
  34. FAMOTIDINE [Concomitant]
     Dates: start: 20041014
  35. CEFOTETAN [Concomitant]
  36. ZOLPIDEM TARTRATE [Concomitant]
     Dosage: 10 mg, QD at bed time as needed
     Route: 048
     Dates: start: 20040527, end: 20050323
  37. METOCLOPRAMIDE [Concomitant]
     Dosage: 10 mg, Q4H prn
     Route: 042
     Dates: start: 20040527
  38. DEXAMETHASONE [Concomitant]
  39. MYLANTA [Concomitant]
  40. TETANUS TOXOID [Concomitant]
     Dosage: 0.5 ml, once
     Route: 030
  41. DIPHTHERIA TOXOID [Concomitant]
     Dosage: 0.5 ml, ONCE/SINGLE
     Route: 030
  42. MOTRIN IB [Concomitant]
     Dosage: 800 mg, UNK
  43. CAPECITABINE [Concomitant]
     Dosage: 2000 mg, BID
  44. CYCLOPHOSPHAMIDE [Concomitant]

REACTIONS (98)
  - Death [Fatal]
  - Nausea [Recovered/Resolved]
  - Vomiting [Recovered/Resolved]
  - Dehydration [Unknown]
  - Osteonecrosis of jaw [Unknown]
  - Pain [Unknown]
  - Injury [Unknown]
  - Purulent discharge [Unknown]
  - Oropharyngeal pain [Unknown]
  - Exposed bone in jaw [Unknown]
  - Gingival swelling [Unknown]
  - Malignant neoplasm progression [Unknown]
  - Metastases to liver [Unknown]
  - Hepatic lesion [Unknown]
  - Metastases to bone [Unknown]
  - Bone pain [Unknown]
  - Osteopenia [Unknown]
  - Foot fracture [Unknown]
  - Femur fracture [Unknown]
  - Thoracic vertebral fracture [Unknown]
  - Pathological fracture [Unknown]
  - Basal cell carcinoma [Unknown]
  - Sleep apnoea syndrome [Unknown]
  - Granuloma [Unknown]
  - Chest pain [Unknown]
  - Spinal osteoarthritis [Unknown]
  - Osteoarthritis [Unknown]
  - Osteolysis [Unknown]
  - Diabetes mellitus [Unknown]
  - Hyperglycaemia [Unknown]
  - Depression [Unknown]
  - Metastases to pelvis [Unknown]
  - Cervicitis [Unknown]
  - Uterine cervical squamous metaplasia [Unknown]
  - Leiomyoma [Unknown]
  - Personality change [Unknown]
  - Abdominal hernia [Unknown]
  - Arthralgia [Unknown]
  - Hypertriglyceridaemia [Unknown]
  - Goitre [Unknown]
  - Eyelid ptosis [Unknown]
  - Cutis laxa [Unknown]
  - Bone lesion [Unknown]
  - Epistaxis [Unknown]
  - Neurofibroma [Unknown]
  - Peritonitis [Unknown]
  - Arthropathy [Unknown]
  - Histoplasmosis [Unknown]
  - Pulmonary mass [Unknown]
  - Arteriosclerosis coronary artery [Unknown]
  - Cholelithiasis [Unknown]
  - Subcutaneous abscess [Unknown]
  - Intestinal perforation [Unknown]
  - Medulloblastoma [Unknown]
  - Jaundice [Unknown]
  - Splenomegaly [Unknown]
  - Haematuria [Unknown]
  - Dysuria [Unknown]
  - Hypoaesthesia [Unknown]
  - Urinary tract infection [Unknown]
  - Paraesthesia [Unknown]
  - Renal cyst [Unknown]
  - Hypertension [Unknown]
  - Obesity [Unknown]
  - Back pain [Unknown]
  - Hypokalaemia [Unknown]
  - Weight decreased [Unknown]
  - Dysgeusia [Unknown]
  - Serositis [Unknown]
  - Fatigue [Unknown]
  - Pain in extremity [Unknown]
  - Neck pain [Unknown]
  - Snoring [Unknown]
  - Muscular weakness [Unknown]
  - Musculoskeletal stiffness [Unknown]
  - Muscle spasms [Unknown]
  - Nail avulsion [Unknown]
  - Night sweats [Unknown]
  - Abdominal pain [Unknown]
  - Swelling face [Unknown]
  - Abdominal distension [Unknown]
  - Muscle twitching [Unknown]
  - Cough [Unknown]
  - Dysphonia [Unknown]
  - Onychomycosis [Unknown]
  - Laceration [Unknown]
  - Hot flush [Unknown]
  - Lymphadenopathy [Unknown]
  - Haemorrhage [Unknown]
  - General physical health deterioration [Not Recovered/Not Resolved]
  - Oedema [Unknown]
  - Hiccups [Unknown]
  - Productive cough [Recovered/Resolved]
  - Bloody discharge [Unknown]
  - Dyskinesia [Unknown]
  - Tremor [Unknown]
  - Urinary incontinence [Unknown]
  - Faecal incontinence [Unknown]
